FAERS Safety Report 24684147 (Version 1)
Quarter: 2024Q4

REPORT INFORMATION
  Report Type: Report from Study
  Country: US (occurrence: US)
  Receive Date: 20241202
  Receipt Date: 20241202
  Transmission Date: 20250115
  Serious: Yes (Hospitalization)
  Sender: ABBVIE
  Company Number: US-ABBVIE-6024822

PATIENT
  Age: 69 Year
  Sex: Male
  Weight: 104 kg

DRUGS (3)
  1. IMBRUVICA [Suspect]
     Active Substance: IBRUTINIB
     Indication: Waldenstrom^s macroglobulinaemia
     Dosage: STARTED AROUND END OF JUL-2019, BEGINNING OF AUG-2019
     Route: 048
     Dates: start: 2019, end: 20241108
  2. SIMVASTATIN [Concomitant]
     Active Substance: SIMVASTATIN
     Indication: Blood cholesterol increased
  3. VALACYCLOVIR [Concomitant]
     Active Substance: VALACYCLOVIR HYDROCHLORIDE
     Indication: Herpes zoster

REACTIONS (5)
  - Sinus node dysfunction [Recovered/Resolved]
  - Heart rate irregular [Recovering/Resolving]
  - Atrial fibrillation [Recovering/Resolving]
  - Palpitations [Recovered/Resolved]
  - Hypertension [Recovering/Resolving]

NARRATIVE: CASE EVENT DATE: 20241027
